FAERS Safety Report 13114783 (Version 4)
Quarter: 2017Q3

REPORT INFORMATION
  Report Type: Report from Study
  Country: US (occurrence: US)
  Receive Date: 20170113
  Receipt Date: 20170907
  Transmission Date: 20171127
  Serious: Yes (Other)
  Sender: FDA-Public Use
  Company Number: GXBR2016US003335

PATIENT
  Age: 76 Year
  Sex: Female

DRUGS (1)
  1. GLATOPA [Suspect]
     Active Substance: GLATIRAMER ACETATE
     Indication: MULTIPLE SCLEROSIS
     Dosage: 20 MG, QOD
     Route: 065
     Dates: start: 20160419

REACTIONS (5)
  - Injection site pain [Not Recovered/Not Resolved]
  - Paralysis [Recovered/Resolved]
  - Pain in extremity [Recovering/Resolving]
  - Nausea [Recovered/Resolved]
  - Presyncope [Recovered/Resolved]

NARRATIVE: CASE EVENT DATE: 20161104
